FAERS Safety Report 9271738 (Version 1)
Quarter: 2013Q2

REPORT INFORMATION
  Report Type: Spontaneous
  Country: US (occurrence: US)
  Receive Date: 20130506
  Receipt Date: 20130506
  Transmission Date: 20140414
  Serious: No
  Sender: FDA-Public Use
  Company Number: US-BAYER-2013-055891

PATIENT
  Age: 74 Year
  Sex: Female
  Weight: 99.32 kg

DRUGS (2)
  1. ALEVE TABLET [Suspect]
     Indication: ANALGESIC THERAPY
     Dosage: 4 DF, ONCE
     Route: 048
  2. VITAMINS [Concomitant]

REACTIONS (1)
  - Incorrect dose administered [None]
